FAERS Safety Report 25621898 (Version 1)
Quarter: 2025Q3

REPORT INFORMATION
  Report Type: Spontaneous
  Country: EU (occurrence: EU)
  Receive Date: 20250730
  Receipt Date: 20250730
  Transmission Date: 20251020
  Serious: Yes (Other)
  Sender: MYLAN
  Company Number: EU-MYLANLABS-2025M1064279

PATIENT
  Age: 27 Year
  Sex: Male

DRUGS (6)
  1. PREGABALIN [Suspect]
     Active Substance: PREGABALIN
     Indication: Neuralgia
     Dosage: 75 MILLIGRAM, BID
  2. ACETAMINOPHEN [Suspect]
     Active Substance: ACETAMINOPHEN
     Indication: Neuralgia
  3. ACETAMINOPHEN [Suspect]
     Active Substance: ACETAMINOPHEN
     Dosage: 500 MILLIGRAM, TID (THREE TIME A DAY)
  4. CODEINE [Suspect]
     Active Substance: CODEINE
     Indication: Neuralgia
  5. CODEINE [Suspect]
     Active Substance: CODEINE
     Dosage: 30 MILLIGRAM, TID (THREE TIME A DAY)
  6. SELUMETINIB [Concomitant]
     Active Substance: SELUMETINIB
     Indication: Neurofibromatosis

REACTIONS (1)
  - Drug ineffective [Unknown]
